FAERS Safety Report 19487433 (Version 3)
Quarter: 2021Q4

REPORT INFORMATION
  Report Type: Spontaneous
  Country: US (occurrence: US)
  Receive Date: 20210702
  Receipt Date: 20211201
  Transmission Date: 20220303
  Serious: Yes (Other)
  Sender: FDA-Public Use
  Company Number: US-AMICUS THERAPEUTICS, INC.-AMI_1280

PATIENT
  Age: 53 Year
  Sex: Male
  Weight: 88.435 kg

DRUGS (5)
  1. GALAFOLD [Suspect]
     Active Substance: MIGALASTAT HYDROCHLORIDE
     Indication: Fabry^s disease
     Dosage: 123 MILLIGRAM, QOD
     Route: 048
     Dates: start: 20201118, end: 202102
  2. GALAFOLD [Suspect]
     Active Substance: MIGALASTAT HYDROCHLORIDE
     Dosage: 123 MILLIGRAM, QOD
     Route: 048
     Dates: start: 202103, end: 2021
  3. GALAFOLD [Suspect]
     Active Substance: MIGALASTAT HYDROCHLORIDE
     Dosage: 123 MILLIGRAM, QOD
     Route: 048
     Dates: start: 2021
  4. MULTIVITAMIN                       /07504101/ [Concomitant]
     Indication: Product used for unknown indication
     Dosage: UNK
     Route: 065
  5. VITAMIN D3 [Concomitant]
     Active Substance: CHOLECALCIFEROL
     Indication: Product used for unknown indication
     Dosage: UNK
     Route: 065

REACTIONS (6)
  - Limb operation [Recovered/Resolved]
  - Product administration interrupted [Recovered/Resolved]
  - Product dose omission issue [Recovered/Resolved]
  - Therapeutic product ineffective [Recovering/Resolving]
  - Product dose omission in error [Recovered/Resolved]
  - Muscle spasms [Unknown]

NARRATIVE: CASE EVENT DATE: 20210201
